FAERS Safety Report 6504815-5 (Version None)
Quarter: 2009Q4

REPORT INFORMATION
  Report Type: 
  Country: None (occurrence: None)
  Receive Date: 20091215
  Receipt Date: 20091123
  Transmission Date: 20100525
  Serious: Yes (Other)
  Sender: FDA-Public Use
  Company Number: AE-2009-292

PATIENT
  Sex: Female

DRUGS (2)
  1. METFORMIN [Suspect]
     Dosage: 500MG, TID
     Dates: end: 20090804
  2. EXENATIDE [Suspect]

REACTIONS (2)
  - ABORTION SPONTANEOUS [None]
  - DRUG EXPOSURE DURING PREGNANCY [None]
